FAERS Safety Report 5239269-2 (Version None)
Quarter: 2007Q1

REPORT INFORMATION
  Report Type: 
  Country: None (occurrence: None)
  Receive Date: 20061208
  Receipt Date: 20050919
  Transmission Date: 20070707
  Serious: Yes (Other)
  Sender: FDA-Public Use
  Company Number: 2005UW12594

PATIENT
  Age: 57 Year
  Sex: Female
  Weight: 64.41 kg

DRUGS (5)
  1. CRESTOR [Suspect]
     Indication: BLOOD CHOLESTEROL INCREASED
     Dosage: 10 MG QD PO
     Route: 048
     Dates: start: 20050310
  2. RANITIDINE [Concomitant]
  3. PAROXETINE HCL [Concomitant]
  4. FOSAMAX [Concomitant]
  5. HERBAL SUPPLEMENTS [Concomitant]

REACTIONS (4)
  - CONTUSION [None]
  - ECCHYMOSIS [None]
  - ERYTHEMA [None]
  - RASH [None]
